FAERS Safety Report 7837774-3 (Version None)
Quarter: 2011Q4

REPORT INFORMATION
  Report Type: 
  Country: None (occurrence: None)
  Receive Date: 20111024
  Receipt Date: 20100813
  Transmission Date: 20120403
  Serious: No
  Sender: FDA-Public Use
  Company Number: US-BAYER-201030575NA

PATIENT
  Age: 55 Year
  Sex: Male

DRUGS (1)
  1. CIPROFLOXACIN [Suspect]
     Indication: GASTRIC DISORDER
     Dosage: 500 MG, BID
     Route: 048
     Dates: start: 20100804

REACTIONS (3)
  - DIARRHOEA [None]
  - URINE ABNORMALITY [None]
  - ADVERSE EVENT [None]
